FAERS Safety Report 5078090-5 (Version None)
Quarter: 2006Q3

REPORT INFORMATION
  Report Type: 
  Country: None (occurrence: None)
  Receive Date: 20060720
  Receipt Date: 20060320
  Transmission Date: 20061208
  Serious: Yes (Other)
  Sender: FDA-Public Use
  Company Number: 2006MP000436

PATIENT
  Sex: 0

DRUGS (5)
  1. AGGRASTAT [Suspect]
     Indication: ACUTE MYOCARDIAL INFARCTION
     Dosage: IV
     Route: 042
  2. ASPIRIN [Concomitant]
  3. CLOPIDOGREL BISULFATE [Concomitant]
  4. LOW MOLECULAR WEIGHT HEPARIN [Concomitant]
  5. MORPHINE [Concomitant]

REACTIONS (1)
  - ANAEMIA [None]
